FAERS Safety Report 5759650-2 (Version None)
Quarter: 2008Q2

REPORT INFORMATION
  Report Type: 
  Country: None (occurrence: None)
  Receive Date: 20080605
  Receipt Date: 20080604
  Transmission Date: 20081010
  Serious: Yes (Other)
  Sender: FDA-Public Use
  Company Number: US-BAYER-200810969BCC

PATIENT
  Age: 50 Year
  Sex: Female
  Weight: 48 kg

DRUGS (4)
  1. RID SHAMPOO [Suspect]
     Indication: LICE INFESTATION
     Route: 065
     Dates: start: 20071101, end: 20080229
  2. RID MOUSSE [Suspect]
     Indication: LICE INFESTATION
     Route: 061
     Dates: start: 20071101, end: 20080229
  3. RID COMB [Suspect]
     Indication: LICE INFESTATION
     Dates: start: 20071101, end: 20080229
  4. RID HOME LICE CONTROL SPRAY [Suspect]
     Indication: LICE INFESTATION
     Dates: start: 20071101, end: 20080229

REACTIONS (1)
  - LYMPHADENOPATHY [None]
